FAERS Safety Report 21533554 (Version 2)
Quarter: 2023Q2

REPORT INFORMATION
  Report Type: Report from Study
  Country: CA (occurrence: CA)
  Receive Date: 20221101
  Receipt Date: 20230509
  Transmission Date: 20230722
  Serious: Yes (Other)
  Sender: FDA-Public Use
  Company Number: CA-NOVARTISPH-NVSC2022CA242929

PATIENT
  Age: 76 Year
  Sex: Male
  Weight: 64 kg

DRUGS (1)
  1. PIRFENIDONE [Suspect]
     Active Substance: PIRFENIDONE
     Indication: Idiopathic pulmonary fibrosis
     Dosage: 2403 MG
     Route: 048

REACTIONS (9)
  - Interstitial lung disease [Unknown]
  - Arteriosclerosis coronary artery [Unknown]
  - Bronchiectasis [Unknown]
  - Renal dysplasia [Unknown]
  - Forced vital capacity decreased [Unknown]
  - Lymphadenopathy [Unknown]
  - Lung diffusion disorder [Unknown]
  - Pulmonary mass [Recovered/Resolved]
  - Lung hyperinflation [Unknown]

NARRATIVE: CASE EVENT DATE: 20220323
